FAERS Safety Report 19795051 (Version 1)
Quarter: 2021Q3

REPORT INFORMATION
  Report Type: Spontaneous
  Country: US (occurrence: US)
  Receive Date: 20210904
  Receipt Date: 20210904
  Transmission Date: 20211014
  Serious: No
  Sender: FDA-Public Use
  Company Number: None

PATIENT
  Age: 22 Year
  Sex: Male
  Weight: 133.8 kg

DRUGS (1)
  1. REGEN?COV [Suspect]
     Active Substance: CASIRIVIMAB\IMDEVIMAB
     Indication: COVID-19
     Dosage: ?          OTHER FREQUENCY:1 TIME;?
     Route: 042
     Dates: start: 20210903, end: 20210903

REACTIONS (6)
  - Chills [None]
  - Infusion related reaction [None]
  - Pneumonia [None]
  - Body temperature increased [None]
  - Autoantibody positive [None]
  - Tremor [None]

NARRATIVE: CASE EVENT DATE: 20210903
